FAERS Safety Report 8261342 (Version 8)
Quarter: 2013Q3

REPORT INFORMATION
  Report Type: Report from Study
  Country: GB (occurrence: GB)
  Receive Date: 20111123
  Receipt Date: 20130807
  Transmission Date: 20140515
  Serious: Yes (Hospitalization)
  Sender: FDA-Public Use
  Company Number: GB-ROCHE-1015315

PATIENT
  Age: 78 Year
  Sex: Male

DRUGS (16)
  1. RANIBIZUMAB [Suspect]
     Indication: DIABETIC RETINAL OEDEMA
     Dosage: LAST DOSE PRIOR TO AE ONSET ON 13/JUL/2011
     Route: 050
     Dates: start: 20110217
  2. RANIBIZUMAB [Suspect]
     Route: 050
     Dates: start: 20110314, end: 20110314
  3. RANIBIZUMAB [Suspect]
     Route: 050
     Dates: start: 20110421, end: 20110421
  4. RANIBIZUMAB [Suspect]
     Route: 050
     Dates: start: 20110519, end: 20110519
  5. RANIBIZUMAB [Suspect]
     Route: 050
     Dates: start: 20110613, end: 20110613
  6. RANIBIZUMAB [Suspect]
     Route: 050
     Dates: start: 20110915, end: 20110915
  7. BEVACIZUMAB [Suspect]
     Indication: DIABETIC RETINAL OEDEMA
     Route: 065
  8. ASPIRIN [Concomitant]
     Route: 065
     Dates: start: 20110806, end: 20111030
  9. IRBESARTAN [Concomitant]
     Route: 065
     Dates: start: 20061031, end: 20120617
  10. FUROSEMIDE [Concomitant]
     Route: 065
     Dates: start: 20071205
  11. ATORVASTATIN [Concomitant]
     Route: 065
     Dates: start: 20010330, end: 20120617
  12. ISOSORBIDE MONONITRATE [Concomitant]
     Route: 065
     Dates: start: 20060105, end: 20120117
  13. DIPYRIDAMOLE [Concomitant]
     Route: 065
     Dates: start: 20051216, end: 20111030
  14. METFORMIN [Concomitant]
     Route: 065
     Dates: start: 20040914
  15. METFORMIN [Concomitant]
     Route: 065
     Dates: start: 20090611, end: 20120617
  16. NOVOMIX [Concomitant]
     Route: 065
     Dates: start: 20090611, end: 20120617

REACTIONS (6)
  - Transient ischaemic attack [Recovered/Resolved]
  - Cerebrovascular accident [Unknown]
  - Aphasia [Recovering/Resolving]
  - Confusional state [Recovering/Resolving]
  - Hypoaesthesia [Unknown]
  - Inappropriate schedule of drug administration [Unknown]
